FAERS Safety Report 9098719 (Version 1)
Quarter: 2013Q1

REPORT INFORMATION
  Report Type: Spontaneous
  Country: US (occurrence: US)
  Receive Date: 20130213
  Receipt Date: 20130213
  Transmission Date: 20140127
  Serious: Yes (Hospitalization)
  Sender: FDA-Public Use
  Company Number: US-FRI-1000041802

PATIENT
  Age: 87 Year
  Sex: Female

DRUGS (10)
  1. CELEXA [Suspect]
     Route: 048
  2. DIOVAN HCT [Suspect]
     Dosage: 80-12.5MG
  3. LIPITOR [Concomitant]
     Dosage: 20MG
     Route: 048
  4. TOPROL XL [Concomitant]
     Dosage: 25MG
     Route: 048
  5. ASPIRIN [Concomitant]
     Dosage: 81MG
     Route: 048
  6. RESTORIL [Concomitant]
     Dosage: 15MG
  7. ADVAIR [Concomitant]
  8. LANTUS SOLOSTAR [Concomitant]
     Dosage: 20UNITS
     Route: 058
  9. LOPRESSOR [Concomitant]
     Dosage: 25MG
     Route: 048
  10. SULFAMETHOXAZOLE / TMP [Concomitant]
     Indication: URINARY TRACT INFECTION
     Route: 048

REACTIONS (3)
  - Hypoglycaemia [Recovered/Resolved]
  - Hyponatraemia [Recovered/Resolved]
  - Bradycardia [Unknown]
